FAERS Safety Report 4393843-4 (Version None)
Quarter: 2004Q3

REPORT INFORMATION
  Report Type: 
  Country: None (occurrence: None)
  Receive Date: 20040701
  Receipt Date: 20040618
  Transmission Date: 20050211
  Serious: Yes (Hospitalization, Other)
  Sender: FDA-Public Use
  Company Number: US-JNJFOC-20040301273

PATIENT
  Age: 10 Year
  Sex: Male

DRUGS (9)
  1. REMICADE [Suspect]
     Indication: COLITIS ULCERATIVE
     Dosage: 5 MG/KG, INTRAVENOUS
     Route: 042
     Dates: start: 20030701
  2. REMICADE [Suspect]
     Indication: COLITIS ULCERATIVE
     Dosage: 5 MG/KG, INTRAVENOUS
     Route: 042
     Dates: start: 20030715
  3. REMICADE [Suspect]
     Indication: COLITIS ULCERATIVE
     Dosage: 5 MG/KG, INTRAVENOUS
     Route: 042
     Dates: start: 20030814
  4. REMICADE [Suspect]
     Indication: COLITIS ULCERATIVE
     Dosage: 5 MG/KG, INTRAVENOUS
     Route: 042
     Dates: start: 20031008
  5. REMICADE [Suspect]
     Indication: COLITIS ULCERATIVE
     Dosage: 5 MG/KG, INTRAVENOUS
     Route: 042
     Dates: start: 20031203
  6. IMURAN [Concomitant]
  7. ASACOL [Concomitant]
  8. CALTRATE-D (LEKOVIT CA) [Concomitant]
  9. NIFEREX (POLYSACCHARIDE-IRON COMPLEX) [Concomitant]

REACTIONS (18)
  - ACUTE FEBRILE NEUTROPHILIC DERMATOSIS [None]
  - ARTHRITIS [None]
  - BODY TEMPERATURE INCREASED [None]
  - ERYTHEMA [None]
  - GAIT DISTURBANCE [None]
  - HAEMATOCRIT DECREASED [None]
  - HEART RATE INCREASED [None]
  - INTERVERTEBRAL DISCITIS [None]
  - JOINT RANGE OF MOTION DECREASED [None]
  - OSTEOMYELITIS [None]
  - PLATELET COUNT INCREASED [None]
  - RASH PAPULAR [None]
  - RASH PUSTULAR [None]
  - RASH VESICULAR [None]
  - SCAB [None]
  - SPINAL DISORDER [None]
  - STAPHYLOCOCCAL IMPETIGO [None]
  - TENDERNESS [None]
